FAERS Safety Report 6356904-6 (Version None)
Quarter: 2009Q3

REPORT INFORMATION
  Report Type: 
  Country: None (occurrence: None)
  Receive Date: 20090915
  Receipt Date: 20090904
  Transmission Date: 20100115
  Serious: Yes (Other)
  Sender: FDA-Public Use
  Company Number: US-WATSON-2009-07268

PATIENT
  Sex: Male
  Weight: 87.075 kg

DRUGS (10)
  1. OXYCODONE HYDROCHLORIDE/ACETAMINOPHEN 10/325 MG (WATSON LABORATORIES) [Suspect]
     Indication: BREAKTHROUGH PAIN
     Dosage: TEN TABLETS A DAY WHEN REQUIRED
     Route: 048
     Dates: start: 20090827
  2. OXYCODONE HYDROCHLORIDE/ACETAMINOPHEN 10/325 MG (WATSON LABORATORIES) [Suspect]
     Dosage: 1-2 TABS TID PRN
     Route: 048
     Dates: start: 19960101, end: 20090826
  3. OPANA ER [Suspect]
     Indication: PAIN
     Dosage: 40 MG, 2 TABS BID
     Route: 048
     Dates: start: 20090825, end: 20090827
  4. OPANA ER [Suspect]
     Dosage: 30 MG, 2 TABLETS IN THE MORNING, 1 AT MIDDAY, 2 AT NIGHT
     Route: 048
     Dates: start: 20090824, end: 20090825
  5. OPANA ER [Suspect]
     Dosage: 30 MG, BID
     Route: 048
     Dates: start: 20090812, end: 20090824
  6. NEURONTIN [Suspect]
     Indication: FIBROMYALGIA
     Dosage: 300 MG, ON AN INCREASING DOSE Q 3 DAYS
     Route: 048
     Dates: start: 20090825
  7. AMBIEN [Suspect]
     Indication: DRUG USE FOR UNKNOWN INDICATION
     Dosage: 10 MG, AT NIGHT
     Route: 048
     Dates: start: 19990101
  8. SINGLET                            /00446801/ [Suspect]
     Indication: SEASONAL ALLERGY
     Dosage: ONCE DAILY
     Route: 048
     Dates: start: 19990101
  9. KLONOPIN [Suspect]
     Indication: DRUG USE FOR UNKNOWN INDICATION
     Dosage: 1 MG, TID
     Route: 048
     Dates: start: 20040101
  10. ZANAFLEX [Suspect]
     Indication: FIBROMYALGIA
     Dosage: 4 MG, BID
     Route: 048
     Dates: start: 19960101

REACTIONS (11)
  - CONFUSIONAL STATE [None]
  - CONTUSION [None]
  - DRUG INEFFECTIVE [None]
  - FACIAL BONES FRACTURE [None]
  - HAEMOPTYSIS [None]
  - HEADACHE [None]
  - LOSS OF CONSCIOUSNESS [None]
  - NAUSEA [None]
  - PERIORBITAL HAEMATOMA [None]
  - ROAD TRAFFIC ACCIDENT [None]
  - SKIN LACERATION [None]
